FAERS Safety Report 6876062-9 (Version None)
Quarter: 2010Q3

REPORT INFORMATION
  Report Type: 
  Country: None (occurrence: None)
  Receive Date: 20100727
  Receipt Date: 20100722
  Transmission Date: 20110219
  Serious: Yes (Hospitalization, Other)
  Sender: FDA-Public Use
  Company Number: GB-MERCK-0901GBR00053

PATIENT
  Age: 61 Year
  Sex: Female

DRUGS (8)
  1. ZOCOR [Suspect]
     Indication: RENAL TRANSPLANT
     Route: 048
  2. ZOCOR [Suspect]
     Route: 048
  3. CYCLOSPORINE [Suspect]
     Indication: RENAL TRANSPLANT
     Route: 065
  4. AZATHIOPRINE [Concomitant]
     Indication: RENAL TRANSPLANT
     Route: 065
  5. AZATHIOPRINE [Concomitant]
     Indication: ATRIAL FIBRILLATION
     Route: 065
  6. PREDNISOLONE [Concomitant]
     Indication: RENAL TRANSPLANT
     Route: 065
  7. PREDNISOLONE [Concomitant]
     Indication: ATRIAL FIBRILLATION
     Route: 065
  8. WARFARIN [Concomitant]
     Indication: ATRIAL FIBRILLATION
     Route: 065

REACTIONS (9)
  - ASTHENIA [None]
  - BLOOD CREATINE PHOSPHOKINASE INCREASED [None]
  - DRUG INTERACTION [None]
  - IMMUNOSUPPRESSANT DRUG LEVEL INCREASED [None]
  - MYALGIA [None]
  - MYOPATHY [None]
  - RENAL FAILURE [None]
  - RHABDOMYOLYSIS [None]
  - UBIQUINONE DECREASED [None]
